FAERS Safety Report 18050468 (Version 1)
Quarter: 2020Q3

REPORT INFORMATION
  Report Type: Spontaneous
  Country: US (occurrence: US)
  Receive Date: 20200721
  Receipt Date: 20200721
  Transmission Date: 20201103
  Serious: Yes (Death, Hospitalization, Other)
  Sender: FDA-Public Use
  Company Number: US-ALVOGEN-2020-ALVOGEN-108970

PATIENT
  Sex: Female

DRUGS (1)
  1. HYDROCODONE BITARTRATE. [Suspect]
     Active Substance: HYDROCODONE BITARTRATE
     Indication: PRODUCT USED FOR UNKNOWN INDICATION

REACTIONS (13)
  - Blindness [Unknown]
  - Constipation [Unknown]
  - Hallucination [Unknown]
  - Drug dependence [Unknown]
  - Insomnia [Unknown]
  - Gait inability [Unknown]
  - Hypersomnia [Unknown]
  - Crying [Unknown]
  - Feeding disorder [Unknown]
  - Death [Fatal]
  - Gastric cancer [Unknown]
  - Faeces hard [Unknown]
  - Unevaluable event [Unknown]
